FAERS Safety Report 7779848-1 (Version None)
Quarter: 2011Q3

REPORT INFORMATION
  Report Type: 
  Country: None (occurrence: None)
  Receive Date: 20110927
  Receipt Date: 20110916
  Transmission Date: 20111222
  Serious: Yes (Hospitalization)
  Sender: FDA-Public Use
  Company Number: JP-JNJFOC-20110904414

PATIENT
  Age: 51 Year
  Sex: Female

DRUGS (2)
  1. FENTANYL CITRATE [Suspect]
     Indication: CANCER PAIN
     Route: 062
     Dates: start: 20110902, end: 20110916
  2. FENTANYL CITRATE [Suspect]
     Route: 062
     Dates: start: 20110816, end: 20110902

REACTIONS (2)
  - DECREASED APPETITE [None]
  - HOSPITALISATION [None]
